FAERS Safety Report 16677528 (Version 1)
Quarter: 2019Q3

REPORT INFORMATION
  Report Type: Spontaneous
  Country: GB (occurrence: GB)
  Receive Date: 20190807
  Receipt Date: 20190807
  Transmission Date: 20191004
  Serious: Yes (Hospitalization)
  Sender: FDA-Public Use
  Company Number: GB-PFIZER INC-2019331842

PATIENT
  Sex: Female

DRUGS (2)
  1. COCODAMOL [Suspect]
     Active Substance: ACETAMINOPHEN\CODEINE PHOSPHATE
     Dosage: 100 DF, WEEKLY
  2. LYRICA [Suspect]
     Active Substance: PREGABALIN
     Dosage: 50 DF, WEEKLY

REACTIONS (6)
  - Tremor [Unknown]
  - Liver injury [Unknown]
  - Dependence [Recovered/Resolved]
  - Weight increased [Recovered/Resolved]
  - Product prescribing issue [Unknown]
  - Increased appetite [Recovered/Resolved]
